FAERS Safety Report 14396392 (Version 1)
Quarter: 2018Q1

REPORT INFORMATION
  Report Type: Spontaneous
  Country: US (occurrence: US)
  Receive Date: 20180116
  Receipt Date: 20180116
  Transmission Date: 20180509
  Serious: No
  Sender: FDA-Public Use
  Company Number: US-ALLERGAN-1728002US

PATIENT
  Age: 35 Year
  Sex: Female
  Weight: 56.69 kg

DRUGS (2)
  1. BOTOX COSMETIC [Suspect]
     Active Substance: ONABOTULINUMTOXINA
     Indication: SKIN WRINKLING
     Dosage: 2 UNITS, SINGLE
     Route: 030
     Dates: start: 20170331, end: 20170331
  2. BOTOX COSMETIC [Suspect]
     Active Substance: ONABOTULINUMTOXINA
     Indication: SKIN WRINKLING

REACTIONS (8)
  - Off label use [Unknown]
  - Sinus congestion [Recovered/Resolved]
  - Skin disorder [Not Recovered/Not Resolved]
  - Injection site mass [Recovered/Resolved]
  - Anxiety [Recovered/Resolved]
  - Photopsia [Recovered/Resolved]
  - Vein discolouration [Recovered/Resolved]
  - Therapeutic response unexpected [Unknown]

NARRATIVE: CASE EVENT DATE: 20170331
